FAERS Safety Report 13933701 (Version 6)
Quarter: 2019Q1

REPORT INFORMATION
  Report Type: Spontaneous
  Country: US (occurrence: US)
  Receive Date: 20170904
  Receipt Date: 20190204
  Transmission Date: 20190417
  Serious: Yes (Hospitalization, Other)
  Sender: FDA-Public Use
  Company Number: US-DSJP-DSU-2017-134221

PATIENT

DRUGS (2)
  1. BENICAR [Suspect]
     Active Substance: OLMESARTAN MEDOXOMIL
     Indication: HYPERTENSION
     Dosage: 20 MG, QD
     Route: 048
     Dates: start: 20110511, end: 20171217
  2. AZOR [Suspect]
     Active Substance: AMLODIPINE BESYLATE\OLMESARTAN MEDOXOMIL
     Indication: HYPERTENSION
     Dosage: 5-40 MG, UNK
     Dates: end: 2011

REACTIONS (10)
  - Oedema peripheral [Recovered/Resolved]
  - Sprue-like enteropathy [Recovered/Resolved]
  - Gastrooesophageal reflux disease [Recovered/Resolved]
  - Syncope [Recovering/Resolving]
  - Renal failure [Not Recovered/Not Resolved]
  - Constipation [Unknown]
  - Chest pain [Recovered/Resolved]
  - Mucosal ulceration [Unknown]
  - Large intestine polyp [Unknown]
  - Reactive gastropathy [Recovered/Resolved]

NARRATIVE: CASE EVENT DATE: 2011
